FAERS Safety Report 4399969-3 (Version None)
Quarter: 2004Q3

REPORT INFORMATION
  Report Type: 
  Country: None (occurrence: None)
  Receive Date: 20040714
  Receipt Date: 20040630
  Transmission Date: 20050211
  Serious: Yes (Death)
  Sender: FDA-Public Use
  Company Number: 430001M04CAN

PATIENT
  Age: 62 Year

DRUGS (14)
  1. NOVANTRONE [Suspect]
     Indication: MYELITIS
     Dosage: 12 MG/M2, 1 IN 1 MONTHS, INTRAVENOUS
     Route: 042
     Dates: start: 20030501, end: 20040414
  2. TOBRAMYCIN [Concomitant]
  3. TIMENTIN [Concomitant]
  4. FLURAZEPAM HYDROCHLRIDE [Concomitant]
  5. PHENYTOIN SODIUM [Concomitant]
  6. CLONAZEPAM [Concomitant]
  7. ACYCLOVIR [Concomitant]
  8. BACLOFEN [Concomitant]
  9. METFORMIN HCL [Concomitant]
  10. FENOFIBRATE [Concomitant]
  11. NOREPINEPHRINE BITARTRATE [Concomitant]
  12. LANSOPRAZOLE [Concomitant]
  13. ALENDRONATE SODIUM [Concomitant]
  14. CALCIUM [Concomitant]

REACTIONS (8)
  - BRAIN OEDEMA [None]
  - CONVULSION [None]
  - ENCEPHALOPATHY [None]
  - NEUTROPENIA [None]
  - NUCLEAR MAGNETIC RESONANCE IMAGING ABNORMAL [None]
  - PERICARDIAL EFFUSION [None]
  - PYREXIA [None]
  - WEIGHT DECREASED [None]
